FAERS Safety Report 6023712-5 (Version None)
Quarter: 2008Q4

REPORT INFORMATION
  Report Type: 
  Country: None (occurrence: None)
  Receive Date: 20081223
  Receipt Date: 20081211
  Transmission Date: 20090506
  Serious: No
  Sender: FDA-Public Use
  Company Number: 2008-188436-NL

PATIENT
  Age: 42 Year
  Sex: Female

DRUGS (1)
  1. NUVARING [Suspect]
     Indication: CONTRACEPTION
     Dosage: DF
     Route: 067
     Dates: start: 20081115, end: 20081115

REACTIONS (1)
  - AUTONOMIC NERVOUS SYSTEM IMBALANCE [None]
